FAERS Safety Report 5490306-X (Version None)
Quarter: 2007Q4

REPORT INFORMATION
  Report Type: 
  Country: None (occurrence: None)
  Receive Date: 20071017
  Receipt Date: 20071009
  Transmission Date: 20080405
  Serious: Yes (Hospitalization)
  Sender: FDA-Public Use
  Company Number: 2007BI019730

PATIENT
  Age: 41 Year
  Sex: Female
  Weight: 41.7309 kg

DRUGS (3)
  1. AVONEX [Suspect]
     Indication: MULTIPLE SCLEROSIS
     Dosage: 30 UG; QW; IM
     Route: 030
     Dates: start: 20070401, end: 20070801
  2. TOPAMAX [Concomitant]
  3. KEPPRA [Concomitant]

REACTIONS (4)
  - CONVULSION [None]
  - DEHYDRATION [None]
  - DIALYSIS [None]
  - RENAL FAILURE [None]
